FAERS Safety Report 19281527 (Version 2)
Quarter: 2021Q2

REPORT INFORMATION
  Report Type: Spontaneous
  Country: FR (occurrence: FR)
  Receive Date: 20210520
  Receipt Date: 20210601
  Transmission Date: 20210717
  Serious: Yes (Hospitalization)
  Sender: FDA-Public Use
  Company Number: FR-ALSI-2021000139

PATIENT
  Age: 20 Year
  Sex: Male

DRUGS (3)
  1. ALCOHOL. [Suspect]
     Active Substance: ALCOHOL
     Route: 048
  2. NITROUS OXIDE. [Suspect]
     Active Substance: NITROUS OXIDE
     Indication: DRUG ABUSE
     Dates: start: 20210205
  3. CANNABIS [Suspect]
     Active Substance: CANNABIS SATIVA SUBSP. INDICA TOP
     Route: 065

REACTIONS (9)
  - Musculoskeletal stiffness [Recovering/Resolving]
  - Tinnitus [Recovering/Resolving]
  - Feeling hot [Recovering/Resolving]
  - Drug abuse [Not Recovered/Not Resolved]
  - Depersonalisation/derealisation disorder [Recovering/Resolving]
  - Ear pain [Recovering/Resolving]
  - Dysaesthesia [Recovering/Resolving]
  - Headache [Recovering/Resolving]
  - Apathy [Recovering/Resolving]

NARRATIVE: CASE EVENT DATE: 20210217
